FAERS Safety Report 24972131 (Version 2)
Quarter: 2025Q1

REPORT INFORMATION
  Report Type: Spontaneous
  Country: US (occurrence: US)
  Receive Date: 20250214
  Receipt Date: 20250228
  Transmission Date: 20250409
  Serious: Yes (Hospitalization)
  Sender: RIGEL PHARMACEUTICALS
  Company Number: US-RIGEL Pharmaceuticals INC-20250100080

PATIENT
  Age: 61 Year
  Sex: Female
  Weight: 58.79 kg

DRUGS (2)
  1. TAVALISSE [Suspect]
     Active Substance: FOSTAMATINIB
     Indication: Immune thrombocytopenia
     Dosage: 150 MG, BID
     Route: 048
     Dates: start: 20231205, end: 2025
  2. TAVALISSE [Suspect]
     Active Substance: FOSTAMATINIB
     Dosage: 150 MG, BID
     Route: 048
     Dates: start: 2025

REACTIONS (3)
  - Influenza [Recovered/Resolved]
  - Immune thrombocytopenia [Unknown]
  - Taste disorder [Unknown]

NARRATIVE: CASE EVENT DATE: 20250201
